FAERS Safety Report 10978048 (Version 1)
Quarter: 2015Q1

REPORT INFORMATION
  Report Type: Spontaneous
  Country: CH (occurrence: None)
  Receive Date: 20150331
  Receipt Date: 20150331
  Transmission Date: 20150721
  Serious: Yes (Hospitalization)
  Sender: FDA-Public Use
  Company Number: 20150180

PATIENT
  Age: 84 Year
  Sex: Female

DRUGS (3)
  1. FERINJECT [Suspect]
     Active Substance: FERRIC CARBOXYMALTOSE
     Indication: IRON DEFICIENCY ANAEMIA
     Dosage: 500MG OVER 10 MINUTES, INTRAVENOUS BOLUS
     Route: 040
     Dates: start: 20150115, end: 20150315
  2. OPIATES (UNSPECIFIED) [Concomitant]
  3. ANTICOAGULANTS (UNSPECIFIED) [Concomitant]

REACTIONS (2)
  - Breast oedema [None]
  - Oedema peripheral [None]

NARRATIVE: CASE EVENT DATE: 201501
